FAERS Safety Report 13197801 (Version 3)
Quarter: 2017Q2

REPORT INFORMATION
  Report Type: Spontaneous
  Country: US (occurrence: US)
  Receive Date: 20170208
  Receipt Date: 20170421
  Transmission Date: 20170830
  Serious: Yes (Other)
  Sender: FDA-Public Use
  Company Number: US-PFIZER INC-2017056065

PATIENT
  Age: 57 Year
  Sex: Male

DRUGS (6)
  1. DILANTIN [Suspect]
     Active Substance: PHENYTOIN
     Dosage: 100 MG, 4X/DAY (ONE CAPSULE AM, ONE CAPSULE AT NOON, 2 CAPSULES PM)
     Route: 048
     Dates: start: 20070924
  2. DILANTIN [Suspect]
     Active Substance: PHENYTOIN
     Dosage: 500 MG, DAILY (100 MG TWO CAPSULES AM, ONE CAPSULE AT NOON AND TWO CAPSULES PM
     Route: 048
     Dates: start: 20061030
  3. DILANTIN [Suspect]
     Active Substance: PHENYTOIN
     Dosage: 100 MG, 3X/DAY (ONE CAPSULE AM AND TWO CAPSULES PM)
     Route: 048
     Dates: start: 20081203, end: 20090827
  4. DILANTIN-125 [Suspect]
     Active Substance: PHENYTOIN
     Indication: GENERALISED TONIC-CLONIC SEIZURE
     Dosage: UNK
     Dates: start: 1966
  5. DILANTIN [Suspect]
     Active Substance: PHENYTOIN
     Indication: GENERALISED TONIC-CLONIC SEIZURE
     Dosage: 100 MG, 3X/DAY
     Route: 048
     Dates: start: 20060621
  6. LAMICTAL [Concomitant]
     Active Substance: LAMOTRIGINE
     Dosage: 400 MG, 2X/DAY (200 MG TABLET ORALLY TWO TABLETS TWICE DAILY)
     Route: 048
     Dates: start: 20070924

REACTIONS (5)
  - Cerebellar atrophy [Unknown]
  - Bone metabolism disorder [Unknown]
  - Osteoporosis [Unknown]
  - Vitamin D deficiency [Unknown]
  - Gingival hypertrophy [Unknown]

NARRATIVE: CASE EVENT DATE: 20070924
